FAERS Safety Report 14308980 (Version 2)
Quarter: 2017Q4

REPORT INFORMATION
  Report Type: Spontaneous
  Country: SI (occurrence: SI)
  Receive Date: 20171220
  Receipt Date: 20171222
  Transmission Date: 20180321
  Serious: Yes (Hospitalization, Other)
  Sender: FDA-Public Use
  Company Number: SI-GLAXOSMITHKLINE-SI2017GSK194712

PATIENT
  Age: 55 Year
  Sex: Male

DRUGS (3)
  1. SPIRIVA [Concomitant]
     Active Substance: TIOTROPIUM BROMIDE MONOHYDRATE
     Indication: CHRONIC OBSTRUCTIVE PULMONARY DISEASE
     Dosage: 1 PUFF(S), QD
     Route: 055
  2. SERETIDE [Suspect]
     Active Substance: FLUTICASONE PROPIONATE\SALMETEROL XINAFOATE
     Indication: CHRONIC OBSTRUCTIVE PULMONARY DISEASE
     Dosage: UNK UNK, BID
     Route: 055
     Dates: start: 2013
  3. BERODUAL [Concomitant]
     Active Substance: FENOTEROL HYDROBROMIDE\IPRATROPIUM BROMIDE
     Indication: CHRONIC OBSTRUCTIVE PULMONARY DISEASE
     Dosage: 2 PUFF(S), PRN
     Route: 055

REACTIONS (7)
  - Emphysema [Unknown]
  - Drug dose omission [Recovering/Resolving]
  - Dyspnoea [Unknown]
  - Chronic obstructive pulmonary disease [Recovering/Resolving]
  - Acute respiratory failure [Recovering/Resolving]
  - Cough [Unknown]
  - Respiratory tract inflammation [Recovering/Resolving]

NARRATIVE: CASE EVENT DATE: 2017
